FAERS Safety Report 5763144-8 (Version None)
Quarter: 2008Q2

REPORT INFORMATION
  Report Type: 
  Country: None (occurrence: None)
  Receive Date: 20080609
  Receipt Date: 20080526
  Transmission Date: 20081010
  Serious: Yes (Disabling)
  Sender: FDA-Public Use
  Company Number: FR-PFIZER INC-2008045267

PATIENT
  Sex: Female

DRUGS (11)
  1. FARMORUBICIN [Suspect]
     Indication: BREAST CANCER
     Route: 042
     Dates: start: 20070725, end: 20071113
  2. SOLU-MEDROL [Suspect]
     Indication: PREMEDICATION
  3. TAMOXIFEN CITRATE [Suspect]
  4. NEULASTA [Suspect]
     Indication: PROPHYLAXIS
     Dosage: TEXT:1DF
     Route: 058
  5. ENDOXAN [Suspect]
     Indication: BREAST CANCER
     Route: 042
     Dates: start: 20070725, end: 20071113
  6. POLARAMINE [Suspect]
     Indication: PREMEDICATION
     Route: 042
  7. TAXOTERE [Suspect]
     Indication: BREAST CANCER
     Dosage: DAILY DOSE:125MG
     Route: 042
     Dates: start: 20070725, end: 20071113
  8. ZOPHREN [Suspect]
     Indication: PREMEDICATION
  9. OSMOTAN [Suspect]
     Indication: PREMEDICATION
  10. PRIMPERAN TAB [Suspect]
     Indication: PREMEDICATION
  11. TRASTUZUMAB [Suspect]
     Dosage: DAILY DOSE:520MG
     Route: 042
     Dates: start: 20080218, end: 20080312

REACTIONS (1)
  - HYPOTHYROIDISM [None]
